FAERS Safety Report 17511754 (Version 1)
Quarter: 2020Q1

REPORT INFORMATION
  Report Type: Spontaneous
  Country: GB (occurrence: GB)
  Receive Date: 20200307
  Receipt Date: 20200307
  Transmission Date: 20200409
  Serious: Yes (Hospitalization, Other)
  Sender: FDA-Public Use
  Company Number: GB-ACCORD-175116

PATIENT
  Age: 70 Year
  Sex: Female
  Weight: 64 kg

DRUGS (8)
  1. PACLITAXEL/PACLITAXEL LIPOSOME [Suspect]
     Active Substance: PACLITAXEL
     Indication: OVARIAN CANCER
     Dosage: STRENGTH: 80 MILLIGRAM/SQ. METER, WEEKLY
     Route: 042
     Dates: start: 20191203
  2. DOCUSATE [Concomitant]
     Active Substance: DOCUSATE
  3. HYPROMELLOSE/HYPROMELLOSE PHTHALATE [Concomitant]
     Dosage: STRENGTH: 0.3 PERCENT
  4. PARACETAMOL [Concomitant]
     Active Substance: ACETAMINOPHEN
  5. DOMPERIDONE [Concomitant]
     Active Substance: DOMPERIDONE
     Dates: start: 20191202
  6. PACLITAXEL/PACLITAXEL LIPOSOME [Suspect]
     Active Substance: PACLITAXEL
     Indication: OVARIAN CANCER
     Dosage: STRENGTH: 80 MILLIGRAM/SQ. METER, WEEKLY
     Route: 042
     Dates: start: 20191223
  7. PACLITAXEL/PACLITAXEL LIPOSOME [Suspect]
     Active Substance: PACLITAXEL
     Indication: OVARIAN CANCER
     Dosage: STRENGTH: 80 MILLIGRAM/SQ. METER, WEEKLY
     Route: 042
     Dates: start: 20191231
  8. MORPHINE [Concomitant]
     Active Substance: MORPHINE

REACTIONS (7)
  - Constipation [Recovered/Resolved]
  - Malaise [Unknown]
  - Abdominal pain [Recovering/Resolving]
  - Dyspnoea [Not Recovered/Not Resolved]
  - Electrolyte imbalance [Recovering/Resolving]
  - Vomiting [Recovered/Resolved]
  - Ascites [Not Recovered/Not Resolved]

NARRATIVE: CASE EVENT DATE: 20191205
